FAERS Safety Report 7412813-2 (Version None)
Quarter: 2011Q2

REPORT INFORMATION
  Report Type: 
  Country: None (occurrence: None)
  Receive Date: 20110413
  Receipt Date: 20110401
  Transmission Date: 20111010
  Serious: Yes (Hospitalization)
  Sender: FDA-Public Use
  Company Number: B0706532A

PATIENT
  Sex: Male
  Weight: 62 kg

DRUGS (10)
  1. SEROPRAM [Concomitant]
     Indication: DEPRESSION
     Route: 048
     Dates: start: 20110228, end: 20110306
  2. DEXAMETHASONE [Concomitant]
     Dates: start: 20110221
  3. PENRAZOL [Concomitant]
     Indication: PROPHYLAXIS
     Dosage: 20MG PER DAY
     Dates: start: 20110215, end: 20110221
  4. DEXODON [Concomitant]
     Route: 042
     Dates: start: 20110222, end: 20110308
  5. DEXAMETHASONE [Suspect]
     Dosage: 4MG PER DAY
     Dates: start: 20110208, end: 20110220
  6. CAPOTEN [Concomitant]
     Indication: HYPERTENSION
     Dates: start: 20110224
  7. PARAFFIN OIL [Concomitant]
     Indication: CONSTIPATION
     Dosage: 30CC THREE TIMES PER DAY
     Route: 048
     Dates: start: 20110305, end: 20110306
  8. LAPATINIB [Suspect]
     Dosage: 1250MG PER DAY
     Route: 048
     Dates: start: 20110208, end: 20110220
  9. LORNOXICAM [Concomitant]
     Indication: BONE PAIN
     Dosage: 8MG PER DAY
     Dates: start: 20110215, end: 20110220
  10. DEXODON [Concomitant]
     Route: 048
     Dates: start: 20110308

REACTIONS (1)
  - JEJUNAL PERFORATION [None]
